FAERS Safety Report 15734750 (Version 3)
Quarter: 2019Q2

REPORT INFORMATION
  Report Type: Spontaneous
  Country: US (occurrence: US)
  Receive Date: 20181218
  Receipt Date: 20190506
  Transmission Date: 20190711
  Serious: Yes (Other)
  Sender: FDA-Public Use
  Company Number: US-PFIZER INC-2018517269

PATIENT
  Age: 69 Year
  Sex: Female

DRUGS (2)
  1. SUTENT [Suspect]
     Active Substance: SUNITINIB MALATE
     Indication: RENAL CANCER
     Dosage: 50 MG, CYCLIC(DAILY FOR 4 WEEKS FOLLOWED BY 2 WEEKS OFF)
     Dates: start: 20181126, end: 20181214
  2. SUTENT [Suspect]
     Active Substance: SUNITINIB MALATE
     Indication: ADJUVANT THERAPY
     Dosage: 37.5 MG, UNK
     Dates: start: 20190101, end: 20190225

REACTIONS (21)
  - Intentional product misuse [Unknown]
  - Dizziness [Not Recovered/Not Resolved]
  - Fluid intake reduced [Not Recovered/Not Resolved]
  - Memory impairment [Recovered/Resolved]
  - Syncope [Not Recovered/Not Resolved]
  - Alopecia [Unknown]
  - Stomatitis [Unknown]
  - Oropharyngeal pain [Unknown]
  - Ageusia [Unknown]
  - Dyspnoea [Unknown]
  - Disorientation [Unknown]
  - Visual impairment [Unknown]
  - Malaise [Not Recovered/Not Resolved]
  - Throat lesion [Unknown]
  - Hypotension [Unknown]
  - Fatigue [Unknown]
  - Headache [Not Recovered/Not Resolved]
  - Skin disorder [Unknown]
  - Dyspepsia [Unknown]
  - Tongue discomfort [Unknown]
  - Hot flush [Unknown]

NARRATIVE: CASE EVENT DATE: 201812
